FAERS Safety Report 5658226-5 (Version None)
Quarter: 2008Q1

REPORT INFORMATION
  Report Type: 
  Country: None (occurrence: None)
  Receive Date: 20080310
  Receipt Date: 20070315
  Transmission Date: 20080703
  Serious: No
  Sender: FDA-Public Use
  Company Number: US-BAYER-200710151BCC

PATIENT
  Sex: Female

DRUGS (3)
  1. ALEVE [Suspect]
     Indication: PAIN
     Dosage: AS USED: 220 MG  UNIT DOSE: 220 MG
     Route: 048
  2. BENICAR [Interacting]
     Indication: HYPERTENSION
  3. ATENOLOL [Interacting]
     Indication: HYPERTENSION

REACTIONS (1)
  - DRY MOUTH [None]
